FAERS Safety Report 4369232-5 (Version None)
Quarter: 2004Q2

REPORT INFORMATION
  Report Type: 
  Country: None (occurrence: None)
  Receive Date: 20040603
  Receipt Date: 20031110
  Transmission Date: 20050107
  Serious: No
  Sender: FDA-Public Use
  Company Number: US-GLAXOSMITHKLINE-A0439002A

PATIENT
  Age: 79 Year
  Sex: Male

DRUGS (2)
  1. AMOXICILLIN AND CLAVULANATE POTASSIUM [Suspect]
     Indication: VIRAL INFECTION
     Route: 048
     Dates: start: 20031104
  2. COUGH SYRUP [Concomitant]

REACTIONS (2)
  - DRY MOUTH [None]
  - OEDEMA MOUTH [None]
